FAERS Safety Report 18360939 (Version 1)
Quarter: 2020Q4

REPORT INFORMATION
  Report Type: Report from Study
  Country: US (occurrence: US)
  Receive Date: 20201008
  Receipt Date: 20201008
  Transmission Date: 20210114
  Serious: Yes (Other)
  Sender: FDA-Public Use
  Company Number: US-BAYER-2020-197703

PATIENT
  Age: 62 Year
  Sex: Female
  Weight: 73.92 kg

DRUGS (3)
  1. ADEMPAS [Suspect]
     Active Substance: RIOCIGUAT
     Indication: PULMONARY ARTERIAL HYPERTENSION
     Dosage: UNK
     Dates: start: 20190604
  2. ORENITRAM [Concomitant]
     Active Substance: TREPROSTINIL
     Dosage: UNK
  3. ADEMPAS [Suspect]
     Active Substance: RIOCIGUAT
     Indication: PULMONARY ARTERIAL HYPERTENSION
     Dosage: 2.5 MG, TID
     Route: 048

REACTIONS (12)
  - Abdominal distension [Not Recovered/Not Resolved]
  - Hepatosplenomegaly [Unknown]
  - Oesophageal dysplasia [Unknown]
  - Gastric dilatation [Not Recovered/Not Resolved]
  - Constipation [Unknown]
  - Swelling [Unknown]
  - Generalised oedema [None]
  - Gastrooesophageal reflux disease [Unknown]
  - Palpitations [Unknown]
  - Eating disorder [Unknown]
  - Blood magnesium decreased [None]
  - Oedema [Unknown]

NARRATIVE: CASE EVENT DATE: 202009
